FAERS Safety Report 15547502 (Version 1)
Quarter: 2018Q4

REPORT INFORMATION
  Report Type: Report from Study
  Country: US (occurrence: US)
  Receive Date: 20181024
  Receipt Date: 20181024
  Transmission Date: 20190205
  Serious: Yes (Other)
  Sender: FDA-Public Use
  Company Number: US-PFIZER INC-2018259405

PATIENT
  Age: 53 Year
  Sex: Female

DRUGS (3)
  1. VISTARIL [Suspect]
     Active Substance: HYDROXYZINE PAMOATE
     Dosage: UNK
     Route: 058
  2. HUMIRA [Suspect]
     Active Substance: ADALIMUMAB
     Indication: PSORIASIS
     Dosage: UNK
     Route: 058
  3. HUMIRA [Suspect]
     Active Substance: ADALIMUMAB
     Dosage: UNK
     Route: 058

REACTIONS (23)
  - Dry skin [Recovering/Resolving]
  - Influenza [Unknown]
  - Condition aggravated [Unknown]
  - Dizziness [Unknown]
  - Arthritis [Unknown]
  - Fibromyalgia [Unknown]
  - Ear infection [Unknown]
  - Sinusitis [Unknown]
  - Respiratory tract congestion [Unknown]
  - Sensitivity to weather change [Unknown]
  - Neuralgia [Unknown]
  - Psoriatic arthropathy [Unknown]
  - Osteoarthritis [Unknown]
  - Insomnia [Unknown]
  - Ear discomfort [Unknown]
  - Seasonal allergy [Unknown]
  - Drug hypersensitivity [Unknown]
  - Psoriasis [Recovering/Resolving]
  - Nasopharyngitis [Unknown]
  - Injection site pain [Unknown]
  - Vertigo [Unknown]
  - Allergic respiratory symptom [Unknown]
  - Injection site bruising [Unknown]

NARRATIVE: CASE EVENT DATE: 201708
